FAERS Safety Report 4509963-7 (Version None)
Quarter: 2004Q4

REPORT INFORMATION
  Report Type: 
  Country: None (occurrence: None)
  Receive Date: 20041124
  Receipt Date: 20041116
  Transmission Date: 20050328
  Serious: Yes (Death)
  Sender: FDA-Public Use
  Company Number: US-JNJFOC-20040206281

PATIENT
  Age: 88 Year
  Sex: Female

DRUGS (4)
  1. DITROPAN [Suspect]
     Indication: URINARY INCONTINENCE
     Route: 049
  2. DITROPAN [Suspect]
     Route: 049
  3. DETROL [Suspect]
     Indication: URINARY INCONTINENCE
     Route: 049
  4. DETROL [Suspect]
     Route: 049

REACTIONS (18)
  - AGEUSIA [None]
  - CARDIO-RESPIRATORY ARREST [None]
  - CONDITION AGGRAVATED [None]
  - DIABETES MELLITUS [None]
  - DRY MOUTH [None]
  - DRY THROAT [None]
  - DYSPHAGIA [None]
  - DYSURIA [None]
  - GINGIVAL PAIN [None]
  - HYPOAESTHESIA ORAL [None]
  - MOUTH ULCERATION [None]
  - NEPHROPATHY [None]
  - OEDEMA MOUTH [None]
  - ORAL PAIN [None]
  - PHARYNGOLARYNGEAL PAIN [None]
  - SWOLLEN TONGUE [None]
  - URETHRAL PAIN [None]
  - URINARY INCONTINENCE [None]
